FAERS Safety Report 15492317 (Version 1)
Quarter: 2018Q4

REPORT INFORMATION
  Report Type: Report from Study
  Country: DE (occurrence: DE)
  Receive Date: 20181012
  Receipt Date: 20181012
  Transmission Date: 20190205
  Serious: Yes (Other)
  Sender: FDA-Public Use
  Company Number: DE-TEVA-2018-DE-954619

PATIENT
  Age: 77 Year
  Sex: Female
  Weight: 85 kg

DRUGS (34)
  1. FOLINIC ACID [Suspect]
     Active Substance: LEUCOVORIN
     Dosage: 800 MG
     Route: 065
     Dates: start: 20180703
  2. FOLINIC ACID [Suspect]
     Active Substance: LEUCOVORIN
     Dosage: 800 MG
     Route: 065
     Dates: start: 20180619
  3. FLUOROURACIL. [Suspect]
     Active Substance: FLUOROURACIL
     Dosage: 2400 MG
     Route: 042
     Dates: start: 20180619
  4. PREDNISOLONE RATIOPHARM [Concomitant]
  5. FLUOROURACIL. [Suspect]
     Active Substance: FLUOROURACIL
     Dosage: 800 MG
     Route: 040
     Dates: start: 20180703
  6. PANITUMUMAB [Suspect]
     Active Substance: PANITUMUMAB
     Dosage: 510 MG
     Route: 042
     Dates: start: 20180731
  7. NALOXONE HYDROCHLORIDE. [Concomitant]
     Active Substance: NALOXONE HYDROCHLORIDE
  8. PROPYPHENAZONE [Concomitant]
     Active Substance: PROPYPHENAZONE
  9. FLUOROURACIL. [Suspect]
     Active Substance: FLUOROURACIL
     Indication: COLORECTAL CANCER METASTATIC
     Dosage: 800 MG
     Route: 040
     Dates: start: 20180605
  10. FLUOROURACIL. [Suspect]
     Active Substance: FLUOROURACIL
     Dosage: 2400 MG
     Route: 042
     Dates: start: 20180717
  11. PANITUMUMAB [Suspect]
     Active Substance: PANITUMUMAB
     Dosage: 510 MG
     Route: 042
     Dates: start: 20180703
  12. LEVOTHYROXINE SODIUM HENNING [Concomitant]
  13. TILIDINE HYDROCHLORIDE [Concomitant]
     Active Substance: TILIDINE HYDROCHLORIDE
  14. PARACETAMOL [Concomitant]
     Active Substance: ACETAMINOPHEN
  15. EPOETIN ALFA [Concomitant]
     Active Substance: ERYTHROPOIETIN
  16. FOLINIC ACID [Suspect]
     Active Substance: LEUCOVORIN
     Indication: COLORECTAL CANCER METASTATIC
     Dosage: 800 MG
     Route: 065
     Dates: start: 20180605
  17. FLUOROURACIL. [Suspect]
     Active Substance: FLUOROURACIL
     Dosage: 2400 MG
     Route: 042
     Dates: start: 20180731
  18. FOLINIC ACID [Suspect]
     Active Substance: LEUCOVORIN
     Dosage: 800 MG
     Route: 065
     Dates: start: 20180717
  19. FLUOROURACIL. [Suspect]
     Active Substance: FLUOROURACIL
     Dosage: 2400 MG
     Route: 042
     Dates: start: 20180605
  20. FLUOROURACIL. [Suspect]
     Active Substance: FLUOROURACIL
     Dosage: 800 MG
     Route: 040
     Dates: start: 20180731
  21. PANITUMUMAB [Suspect]
     Active Substance: PANITUMUMAB
     Indication: COLORECTAL CANCER METASTATIC
     Dosage: 510 MG
     Route: 042
     Dates: start: 20180605
  22. CAFFEINE. [Concomitant]
     Active Substance: CAFFEINE
  23. OXALIPLATIN. [Suspect]
     Active Substance: OXALIPLATIN
     Indication: COLORECTAL CANCER METASTATIC
     Dosage: 85 MG
     Route: 065
     Dates: start: 20180605
  24. OXALIPLATIN. [Suspect]
     Active Substance: OXALIPLATIN
     Dosage: 85 MG
     Route: 065
     Dates: start: 20180703
  25. FLUOROURACIL. [Suspect]
     Active Substance: FLUOROURACIL
     Dosage: 800 MG
     Route: 040
     Dates: start: 20180717
  26. FLUOROURACIL. [Suspect]
     Active Substance: FLUOROURACIL
     Dosage: 800 MG
     Route: 040
     Dates: start: 20180619
  27. PANTOPRAZOLE SODIUM SESQUIHYDRATE RATIOPHARM [Concomitant]
  28. OXALIPLATIN. [Suspect]
     Active Substance: OXALIPLATIN
     Dosage: 85 MG
     Route: 065
     Dates: start: 20180619
  29. OXALIPLATIN. [Suspect]
     Active Substance: OXALIPLATIN
     Dosage: 85 MG
     Route: 065
     Dates: start: 20180717
  30. FLUOROURACIL. [Suspect]
     Active Substance: FLUOROURACIL
     Dosage: 2400 MG
     Route: 042
     Dates: start: 20180703
  31. BISOPROLOL FUMARATE RATIOPHARM [Concomitant]
  32. MIRTAZAPINE RATIOPHARM [Concomitant]
     Active Substance: MIRTAZAPINE
  33. FOLINIC ACID [Suspect]
     Active Substance: LEUCOVORIN
     Dosage: 800 MG
     Route: 065
     Dates: start: 20180731
  34. TORASEMIDE RATIOPHARM [Concomitant]

REACTIONS (3)
  - Deafness neurosensory [Not Recovered/Not Resolved]
  - Paraesthesia [Not Recovered/Not Resolved]
  - Bone pain [Recovered/Resolved]

NARRATIVE: CASE EVENT DATE: 20180814
